FAERS Safety Report 11929593 (Version 1)
Quarter: 2016Q1

REPORT INFORMATION
  Report Type: Spontaneous
  Country: US (occurrence: None)
  Receive Date: 20160119
  Receipt Date: 20160119
  Transmission Date: 20160526
  Serious: No
  Sender: FDA-Public Use
  Company Number: None

PATIENT
  Age: 68 Year
  Sex: Male
  Weight: 108.86 kg

DRUGS (4)
  1. ONE MULTIVITAMIN [Concomitant]
  2. FISH OIL [Concomitant]
     Active Substance: FISH OIL
  3. CIALIS [Suspect]
     Active Substance: TADALAFIL
     Indication: ERECTILE DYSFUNCTION
     Dosage: 10 MG EVERY 3 DAYS, TAKEN BY MOUTH
     Dates: start: 20160116
  4. LOSARTAN. [Concomitant]
     Active Substance: LOSARTAN

REACTIONS (4)
  - Abdominal discomfort [None]
  - Dizziness [None]
  - Pollakiuria [None]
  - Heart rate increased [None]

NARRATIVE: CASE EVENT DATE: 20160116
